FAERS Safety Report 9333641 (Version 1)
Quarter: 2013Q2

REPORT INFORMATION
  Report Type: Spontaneous
  Country: US (occurrence: US)
  Receive Date: 20130606
  Receipt Date: 20130606
  Transmission Date: 20140414
  Serious: No
  Sender: FDA-Public Use
  Company Number: US-AMGEN-USASP2012077776

PATIENT
  Age: 60 Year
  Sex: Female

DRUGS (11)
  1. PROLIA [Suspect]
     Indication: OSTEOPOROSIS POSTMENOPAUSAL
     Dosage: 60 MG, Q6MO
     Dates: start: 201207
  2. MULTIVITAMIN [Concomitant]
     Dosage: UNK
  3. CITRACAL [Concomitant]
     Dosage: UNK
  4. VITAMIN C [Concomitant]
     Dosage: UNK
  5. VITAMIN D [Concomitant]
     Dosage: UNK
  6. VITAMIN E [Concomitant]
     Dosage: UNK
  7. VITAMIN B2 [Concomitant]
     Dosage: UNK
  8. ASPIRIN [Concomitant]
     Dosage: UNK
  9. PAROXETINE [Concomitant]
     Dosage: UNK
  10. LACTAID [Concomitant]
     Dosage: UNK
  11. SLEEP AID [Concomitant]
     Dosage: UNK

REACTIONS (2)
  - Blood cholesterol increased [Unknown]
  - Blood triglycerides increased [Unknown]
